FAERS Safety Report 15575645 (Version 3)
Quarter: 2019Q2

REPORT INFORMATION
  Report Type: Spontaneous
  Country: FR (occurrence: FR)
  Receive Date: 20181101
  Receipt Date: 20190403
  Transmission Date: 20190711
  Serious: Yes (Other)
  Sender: FDA-Public Use
  Company Number: FR-MYLANLABS-2018M1079559

PATIENT
  Age: 87 Year
  Sex: Male
  Weight: 89 kg

DRUGS (2)
  1. BUPIVACAINE MYLAN 20 MG/4 ML, INTRARACHIDIENNE [Suspect]
     Active Substance: BUPIVACAINE
     Indication: SPINAL ANAESTHESIA
     Dosage: UNK
     Route: 037
     Dates: start: 20181011
  2. BUPIVACAINE MYLAN 20 MG/4 ML, INTRARACHIDIENNE [Suspect]
     Active Substance: BUPIVACAINE
     Indication: SPINAL ANAESTHESIA

REACTIONS (1)
  - Drug ineffective [Recovered/Resolved]

NARRATIVE: CASE EVENT DATE: 20181011
